FAERS Safety Report 9103511 (Version 1)
Quarter: 2013Q1

REPORT INFORMATION
  Report Type: Report from Study
  Country: JP (occurrence: JP)
  Receive Date: 20130215
  Receipt Date: 20130215
  Transmission Date: 20140127
  Serious: Yes (Hospitalization, Disabling, Other)
  Sender: FDA-Public Use
  Company Number: PHHY2013JP014301

PATIENT
  Age: 62 Year
  Sex: Female
  Weight: 56 kg

DRUGS (8)
  1. FTY 720 [Suspect]
     Indication: MULTIPLE SCLEROSIS
     Dosage: 0.5 MG, QD
     Route: 048
     Dates: start: 20120427, end: 20121001
  2. PREDONINE [Concomitant]
     Indication: MULTIPLE SCLEROSIS
     Dosage: 15 MG, UNK
     Route: 048
     Dates: end: 20120603
  3. SOLUMEDROL [Concomitant]
     Indication: MULTIPLE SCLEROSIS
     Dosage: 1 G, UNK
     Dates: start: 20120714, end: 20121003
  4. TAKEPRON [Concomitant]
     Indication: PROPHYLAXIS
     Dosage: 15 MG, UNK
     Route: 048
  5. CINAL [Concomitant]
     Route: 048
  6. LOXONIN [Concomitant]
     Indication: HEADACHE
     Dosage: 300 MG, UNK
     Route: 048
  7. MUCOSTA [Concomitant]
     Indication: PROPHYLAXIS
     Dosage: 300 MG, UNK
     Route: 048
  8. CEFZON [Concomitant]
     Indication: SKIN INFECTION
     Dosage: 300 MG, UNK
     Route: 048

REACTIONS (3)
  - Sudden hearing loss [Unknown]
  - VIIth nerve paralysis [Unknown]
  - C-reactive protein increased [Recovering/Resolving]
